FAERS Safety Report 12394560 (Version 5)
Quarter: 2017Q1

REPORT INFORMATION
  Report Type: Spontaneous
  Country: JP (occurrence: JP)
  Receive Date: 20160523
  Receipt Date: 20170203
  Transmission Date: 20170428
  Serious: Yes (Hospitalization)
  Sender: FDA-Public Use
  Company Number: PHJP2016JP010467

PATIENT
  Age: 26 Year
  Sex: Female
  Weight: 54 kg

DRUGS (11)
  1. NEORAL [Concomitant]
     Active Substance: CYCLOSPORINE
     Indication: PUSTULAR PSORIASIS
     Route: 048
  2. NEXIUM [Concomitant]
     Active Substance: ESOMEPRAZOLE MAGNESIUM
     Indication: GASTRITIS
     Dosage: 10 MG, QD
     Route: 048
     Dates: start: 20151104, end: 20160425
  3. HEPARIN CALCIUM [Concomitant]
     Active Substance: HEPARIN CALCIUM
     Indication: THROMBOSIS PROPHYLAXIS
     Dosage: 5000 IU, QD
     Route: 058
     Dates: start: 20160401, end: 20160420
  4. COSENTYX [Suspect]
     Active Substance: SECUKINUMAB
     Indication: IMPETIGO HERPETIFORMIS
     Dosage: 150 MG, BID
     Route: 058
     Dates: start: 20160416, end: 20160416
  5. NEORAL [Concomitant]
     Active Substance: CYCLOSPORINE
     Indication: IMPETIGO HERPETIFORMIS
     Dosage: 100 MG, BID
     Route: 048
     Dates: start: 20160405, end: 20160417
  6. FENELMIN [Concomitant]
     Indication: IRON DEFICIENCY ANAEMIA
     Dosage: 80 MG, BID
     Route: 048
     Dates: start: 20151128, end: 20160527
  7. CUBICIN [Concomitant]
     Active Substance: DAPTOMYCIN
     Indication: BACTERAEMIA
     Dosage: 315 MG, UNK
     Route: 042
     Dates: start: 20160418, end: 20160429
  8. SUCRALFATE. [Concomitant]
     Active Substance: SUCRALFATE
     Indication: GASTRIC ULCER
     Dosage: 10 ML, TID
     Route: 048
     Dates: start: 20151122, end: 20160426
  9. NEUART [Concomitant]
     Active Substance: ANTITHROMBIN III HUMAN
     Indication: BACTERAEMIA
     Dosage: 1500 IU, UNK
     Route: 042
     Dates: start: 20160418
  10. ALESION [Concomitant]
     Active Substance: EPINASTINE HYDROCHLORIDE
     Indication: PRURITUS
     Dosage: 20 MG, QD
     Route: 048
     Dates: start: 20160412, end: 20160426
  11. MEROPENEM. [Concomitant]
     Active Substance: MEROPENEM
     Indication: BACTERAEMIA
     Dosage: 3 G, UNK
     Route: 042
     Dates: start: 20160417, end: 20160428

REACTIONS (2)
  - Leukopenia [Recovered/Resolved]
  - Neutropenia [Recovered/Resolved]

NARRATIVE: CASE EVENT DATE: 20160421
